FAERS Safety Report 8874986 (Version 2)
Quarter: 2013Q1

REPORT INFORMATION
  Report Type: Spontaneous
  Country: US (occurrence: US)
  Receive Date: 20121029
  Receipt Date: 20130122
  Transmission Date: 20140127
  Serious: No
  Sender: FDA-Public Use
  Company Number: US-009507513-1210USA010091

PATIENT
  Sex: Female

DRUGS (9)
  1. JANUVIA [Suspect]
     Dosage: 100 MG, QD
     Route: 048
     Dates: start: 201110
  2. ASPIRIN [Concomitant]
  3. ASCORBIC ACID [Concomitant]
  4. OMEGA-3 MARINE TRIGLYCERIDES [Concomitant]
  5. GLIPIZIDE [Concomitant]
  6. PREMARIN [Concomitant]
  7. LISINOPRIL [Concomitant]
  8. METFORMIN [Concomitant]
  9. SIMVASTATIN TABLETS, USP [Concomitant]

REACTIONS (1)
  - Medication residue present [Not Recovered/Not Resolved]
